FAERS Safety Report 9176503 (Version 2)
Quarter: 2013Q2

REPORT INFORMATION
  Report Type: Spontaneous
  Country: US (occurrence: None)
  Receive Date: 20130319
  Receipt Date: 20130628
  Transmission Date: 20140414
  Serious: Yes (Other)
  Sender: FDA-Public Use
  Company Number: AUR-APL-2013-02286

PATIENT
  Age: 62 Year
  Sex: Female

DRUGS (5)
  1. LEVOTHYROXINE (LEVOTHROXINE) [Concomitant]
  2. MEROPENEM(MEROPENEM) [Concomitant]
  3. RANITIDINE (RANITIDINE) [Concomitant]
  4. VITAMINS [Concomitant]
  5. LEVETIRACETAM [Suspect]
     Indication: CONVULSION
     Dosage: 1000 MG (500 MG,2 IN 1 D)

REACTIONS (5)
  - Hepatic enzyme increased [None]
  - Alanine aminotransferase increased [None]
  - Aspartate aminotransferase increased [None]
  - Blood alkaline phosphatase increased [None]
  - Blood lactate dehydrogenase [None]
